FAERS Safety Report 9026495 (Version 1)
Quarter: 2012Q4

REPORT INFORMATION
  Report Type: Spontaneous
  Country: CL (occurrence: None)
  Receive Date: 20121211
  Receipt Date: 20121211
  Transmission Date: 20130627
  Serious: Yes (Other)
  Sender: FDA-Public Use
  Company Number: 2012-21726

PATIENT
  Age: 57 Year
  Sex: Female

DRUGS (2)
  1. FLUOXETINE HYDROCHLORIDE (UNKNOWN) (FLUOXETINE HYDROCHLORIDE) UNK, UNKUNK [Suspect]
     Indication: PRODUCT USED FOR UNKNOWN INDICATION
     Dosage: 20 mg, unknown, Unknown
  2. ARIPIPRAZOLE (ARIPIPRAZOLE) [Suspect]
     Indication: TRICHOTILLOMANIA
     Dosage: 5 mg, unknown, Unknown

REACTIONS (3)
  - Drug interaction [None]
  - Bradykinesia [None]
  - Resting tremor [None]
